FAERS Safety Report 19564994 (Version 2)
Quarter: 2021Q3

REPORT INFORMATION
  Report Type: Spontaneous
  Country: US (occurrence: US)
  Receive Date: 20210716
  Receipt Date: 20210831
  Transmission Date: 20211014
  Serious: Yes (Hospitalization, Other)
  Sender: FDA-Public Use
  Company Number: US-PFIZER INC-2021820844

PATIENT
  Age: 74 Year
  Sex: Male
  Weight: 70.31 kg

DRUGS (3)
  1. MEDROL [Suspect]
     Active Substance: METHYLPREDNISOLONE
     Dosage: 2 MG, 1X/DAY
     Dates: start: 2020
  2. MEDROL [Suspect]
     Active Substance: METHYLPREDNISOLONE
     Dosage: 2 MG, 2X/DAY
  3. MEDROL [Suspect]
     Active Substance: METHYLPREDNISOLONE
     Indication: HYPEREOSINOPHILIC SYNDROME
     Dosage: 4 MG

REACTIONS (11)
  - Glucocorticoid deficiency [Unknown]
  - Drug dependence [Unknown]
  - Hiatus hernia [Unknown]
  - Weight decreased [Unknown]
  - Intestinal obstruction [Unknown]
  - Dyspepsia [Unknown]
  - Diverticulitis [Unknown]
  - Gastrointestinal disorder [Unknown]
  - Heel fat pad syndrome [Unknown]
  - Off label use [Unknown]
  - Body fat disorder [Unknown]

NARRATIVE: CASE EVENT DATE: 20201223
